FAERS Safety Report 6744384-8 (Version None)
Quarter: 2010Q2

REPORT INFORMATION
  Report Type: 
  Country: None (occurrence: None)
  Receive Date: 20100527
  Receipt Date: 20100517
  Transmission Date: 20101027
  Serious: Yes (Other)
  Sender: FDA-Public Use
  Company Number: JP-PFIZER INC-2010062573

PATIENT
  Age: 43 Year
  Sex: Female

DRUGS (1)
  1. ZITHROMAC SR [Suspect]
     Dosage: 2G/DAY
     Route: 048
     Dates: start: 20100511, end: 20100511

REACTIONS (2)
  - COLITIS ISCHAEMIC [None]
  - DIARRHOEA [None]
